FAERS Safety Report 22000715 (Version 2)
Quarter: 2023Q1

REPORT INFORMATION
  Report Type: Report from Study
  Country: IT (occurrence: IT)
  Receive Date: 20230216
  Receipt Date: 20230222
  Transmission Date: 20230417
  Serious: Yes (Hospitalization)
  Sender: FDA-Public Use
  Company Number: IT-JNJFOC-20230226095

PATIENT
  Age: 81 Year
  Sex: Male
  Weight: 76 kg

DRUGS (17)
  1. DARATUMUMAB [Suspect]
     Active Substance: DARATUMUMAB
     Indication: Plasma cell myeloma
     Dosage: MOST RECENT DOSE PRIOR TO EVENT WAS 29-DEC-2022
     Route: 058
     Dates: start: 20160219
  2. MELPHALAN [Concomitant]
     Active Substance: MELPHALAN
     Indication: Plasma cell myeloma
     Dosage: DOSE 16
     Route: 048
     Dates: start: 20160219, end: 20160222
  3. VELCADE [Concomitant]
     Active Substance: BORTEZOMIB
     Indication: Plasma cell myeloma
     Dosage: DOSE 2.41
     Route: 058
     Dates: start: 20160219, end: 20170221
  4. PREDNISONE [Concomitant]
     Active Substance: PREDNISONE
     Indication: Plasma cell myeloma
     Dosage: DOSE 110
     Route: 048
     Dates: start: 20160220, end: 20170127
  5. RABEPRAZOLE SODIUM [Concomitant]
     Active Substance: RABEPRAZOLE SODIUM
     Indication: Gastrointestinal disorder therapy
     Route: 048
     Dates: start: 20160219
  6. SILODOSIN [Concomitant]
     Active Substance: SILODOSIN
     Indication: Benign prostatic hyperplasia
     Route: 048
  7. LOVASTATIN [Concomitant]
     Active Substance: LOVASTATIN
     Indication: Dyslipidaemia
     Route: 048
  8. BACTRIM [Concomitant]
     Active Substance: SULFAMETHOXAZOLE\TRIMETHOPRIM
     Indication: Antibiotic prophylaxis
     Dosage: 1
     Route: 048
     Dates: start: 20160219
  9. VALACYCLOVIR HYDROCHLORIDE [Concomitant]
     Active Substance: VALACYCLOVIR HYDROCHLORIDE
     Indication: Antiviral prophylaxis
     Route: 048
     Dates: start: 20160219
  10. FLUTICASONE FUROATE\VILANTEROL TRIFENATATE [Concomitant]
     Active Substance: FLUTICASONE FUROATE\VILANTEROL TRIFENATATE
     Indication: Asthma prophylaxis
     Dosage: 1 SPRAY
     Route: 055
     Dates: start: 2016
  11. ACETAMINOPHEN [Concomitant]
     Active Substance: ACETAMINOPHEN
     Indication: Back pain
     Route: 048
  12. ACETAMINOPHEN [Concomitant]
     Active Substance: ACETAMINOPHEN
     Indication: Squamous cell carcinoma
     Route: 048
     Dates: start: 20190126
  13. ZOMETA [Concomitant]
     Active Substance: ZOLEDRONIC ACID
     Indication: Prophylaxis
     Route: 042
     Dates: start: 20160923
  14. LASIX [Concomitant]
     Active Substance: FUROSEMIDE
     Indication: Diuretic therapy
     Dosage: 1 CAPSULE
     Route: 048
     Dates: start: 20160806
  15. PRODIREXAN [Concomitant]
     Indication: Benign prostatic hyperplasia
     Route: 048
     Dates: start: 20160830
  16. SYMBICORT [Concomitant]
     Active Substance: BUDESONIDE\FORMOTEROL FUMARATE DIHYDRATE
     Indication: Obstructive airways disorder
     Dosage: 2 PUFFS
     Route: 045
     Dates: start: 20181210
  17. SPIRIVA RESPIMAT [Concomitant]
     Active Substance: TIOTROPIUM BROMIDE
     Indication: Obstructive airways disorder
     Dosage: 2 PUFFS
     Route: 045
     Dates: start: 20181210

REACTIONS (2)
  - Respiratory failure [Recovered/Resolved]
  - Pneumonia [Recovered/Resolved]

NARRATIVE: CASE EVENT DATE: 20230126
